FAERS Safety Report 12663907 (Version 1)
Quarter: 2016Q3

REPORT INFORMATION
  Report Type: Other
  Country: GB (occurrence: GB)
  Receive Date: 20160818
  Receipt Date: 20160818
  Transmission Date: 20161109
  Serious: Yes (Other)
  Sender: FDA-Public Use
  Company Number: GB-APOTEX-2016AP010296

PATIENT
  Age: 67 Year
  Sex: Female
  Weight: 74 kg

DRUGS (2)
  1. CETIRIZINE [Concomitant]
     Active Substance: CETIRIZINE HYDROCHLORIDE
     Indication: PRODUCT USED FOR UNKNOWN INDICATION
     Route: 065
  2. LATANAPROST 0.005% W/V EYE DROPS, SOLUTION [Suspect]
     Active Substance: LATANOPROST
     Indication: GLAUCOMA
     Dosage: UNK
     Route: 047
     Dates: start: 20160419, end: 20160725

REACTIONS (3)
  - Oral pain [Recovered/Resolved]
  - Oral herpes [Recovered/Resolved]
  - Contraindicated product administered [Unknown]

NARRATIVE: CASE EVENT DATE: 20160518
